FAERS Safety Report 6781632-2 (Version None)
Quarter: 2010Q2

REPORT INFORMATION
  Report Type: 
  Country: None (occurrence: None)
  Receive Date: 20100617
  Receipt Date: 20100617
  Transmission Date: 20101027
  Serious: Yes (Life-Threatening, Hospitalization, Other)
  Sender: FDA-Public Use
  Company Number: None

PATIENT
  Sex: Female
  Weight: 61.2356 kg

DRUGS (2)
  1. GEODON [Suspect]
     Indication: DEMENTIA
     Dosage: 240 MG AT SUPPER/ 20 MG PRN DAILY PO
     Route: 048
     Dates: start: 20100510, end: 20100616
  2. . [Concomitant]

REACTIONS (18)
  - ABNORMAL BEHAVIOUR [None]
  - ANXIETY [None]
  - ASTHENIA [None]
  - BELLIGERENCE [None]
  - CONFUSIONAL STATE [None]
  - DROOLING [None]
  - DRY EYE [None]
  - DYSPHEMIA [None]
  - FALL [None]
  - HALLUCINATION [None]
  - HEADACHE [None]
  - HYPERTENSION [None]
  - PNEUMONIA [None]
  - RESTLESSNESS [None]
  - RHINORRHOEA [None]
  - SPEECH DISORDER [None]
  - SUICIDAL IDEATION [None]
  - TINNITUS [None]
